FAERS Safety Report 11331278 (Version 1)
Quarter: 2015Q3

REPORT INFORMATION
  Report Type: Spontaneous
  Country: US (occurrence: None)
  Receive Date: 20150730
  Receipt Date: 20150730
  Transmission Date: 20151125
  Serious: No
  Sender: FDA-Public Use
  Company Number: None

PATIENT
  Age: 66 Year
  Sex: Female
  Weight: 164 kg

DRUGS (16)
  1. OMEPRAZOLE. [Concomitant]
     Active Substance: OMEPRAZOLE
  2. MULTIVITAMIN [Concomitant]
     Active Substance: VITAMINS
  3. TAMOXIFEN CITRATE. [Suspect]
     Active Substance: TAMOXIFEN CITRATE
     Indication: BREAST CANCER
     Route: 048
     Dates: start: 201403
  4. LOSARTAN (COZAAR) [Concomitant]
  5. ALEVE [Concomitant]
     Active Substance: NAPROXEN SODIUM
  6. IPRATROPIUM BROMIDE. [Concomitant]
     Active Substance: IPRATROPIUM BROMIDE
  7. DOCQLACE [Concomitant]
     Active Substance: DOCUSATE SODIUM
  8. AMLODIPINE BESYLATE. [Concomitant]
     Active Substance: AMLODIPINE BESYLATE
  9. SLEEP AID [Concomitant]
     Active Substance: DIPHENHYDRAMINE HYDROCHLORIDE\DOXYLAMINE SUCCINATE
  10. D-3 [Concomitant]
     Active Substance: CHOLECALCIFEROL
  11. ACCUFLORA [Concomitant]
     Active Substance: UNSPECIFIED INGREDIENT
  12. ATORVASTATIN [Concomitant]
     Active Substance: ATORVASTATIN
  13. METOPROLOL [Concomitant]
     Active Substance: METOPROLOL
  14. CALCIUM CITRACAL [Concomitant]
  15. TAMOXIFEN CITRATE. [Suspect]
     Active Substance: TAMOXIFEN CITRATE
     Indication: PROPHYLAXIS
     Route: 048
     Dates: start: 201403
  16. FLECAINIDE [Concomitant]
     Active Substance: FLECAINIDE

REACTIONS (1)
  - Dysgeusia [None]
